FAERS Safety Report 9094959 (Version 1)
Quarter: 2013Q1

REPORT INFORMATION
  Report Type: Spontaneous
  Country: US (occurrence: None)
  Receive Date: 20130214
  Receipt Date: 20130214
  Transmission Date: 20140127
  Serious: No
  Sender: FDA-Public Use
  Company Number: None

PATIENT
  Sex: Male

DRUGS (2)
  1. PEGASYS [Suspect]
     Indication: HEPATITIS C
     Route: 058
     Dates: start: 20130112, end: 20130120
  2. RIBAVIRIN [Suspect]
     Indication: HEPATITIS C
     Route: 048
     Dates: start: 20130112, end: 20130120

REACTIONS (7)
  - Malaise [None]
  - Hepatic steatosis [None]
  - Incoherent [None]
  - Hallucination [None]
  - Tremor [None]
  - Asthenia [None]
  - Economic problem [None]
